FAERS Safety Report 8544668-7 (Version None)
Quarter: 2012Q3

REPORT INFORMATION
  Report Type: 
  Country: None (occurrence: None)
  Receive Date: 20120727
  Receipt Date: 20120718
  Transmission Date: 20120928
  Serious: Yes (Hospitalization)
  Sender: FDA-Public Use
  Company Number: TR-BRISTOL-MYERS SQUIBB COMPANY-16783607

PATIENT
  Age: 65 Year
  Sex: Male
  Weight: 67 kg

DRUGS (8)
  1. CISPLATIN [Suspect]
     Indication: NON-SMALL CELL LUNG CANCER STAGE III
     Dosage: LAST DOSE ON 9JUL12,50MG/M2
     Route: 042
     Dates: start: 20120521
  2. ISOSORBIDE DINITRATE [Concomitant]
     Indication: MALNUTRITION
     Dates: start: 20120622, end: 20120710
  3. FOLIC ACID [Concomitant]
  4. KYTRIL [Concomitant]
     Indication: VOMITING
     Dates: start: 20120528
  5. VITAMIN B-12 [Concomitant]
  6. ANTEPSIN [Concomitant]
     Dates: start: 20120528
  7. PEMETREXED DISODIUM [Suspect]
     Indication: NON-SMALL CELL LUNG CANCER STAGE III
     Dosage: LAST DOSE ON 9JUL12,375MG/M2
     Route: 042
     Dates: start: 20120521
  8. DEXAMETHASONE [Concomitant]

REACTIONS (4)
  - MUCOSAL INFLAMMATION [None]
  - WEIGHT DECREASED [None]
  - MALNUTRITION [None]
  - VOMITING [None]
